FAERS Safety Report 9924919 (Version 1)
Quarter: 2014Q1

REPORT INFORMATION
  Report Type: Spontaneous
  Country: DE (occurrence: DE)
  Receive Date: 20140226
  Receipt Date: 20140226
  Transmission Date: 20141002
  Serious: No
  Sender: FDA-Public Use
  Company Number: DE-SA-2014SA020660

PATIENT
  Sex: Male
  Weight: 98 kg

DRUGS (1)
  1. MULTAQ [Suspect]
     Indication: ARRHYTHMIA
     Route: 048
     Dates: start: 20140202, end: 20140207

REACTIONS (1)
  - Blood creatinine increased [Recovered/Resolved]
